FAERS Safety Report 4428669-6 (Version None)
Quarter: 2004Q3

REPORT INFORMATION
  Report Type: 
  Country: None (occurrence: None)
  Receive Date: 20040818
  Receipt Date: 20030930
  Transmission Date: 20050211
  Serious: No
  Sender: FDA-Public Use
  Company Number: US-BRISTOL-MYERS SQUIBB COMPANY-12403242

PATIENT
  Age: 80 Year
  Sex: Male

DRUGS (1)
  1. GATIFLO [Suspect]
     Route: 048
     Dates: start: 20030902, end: 20030902

REACTIONS (1)
  - DERMATITIS [None]
